FAERS Safety Report 11496497 (Version 2)
Quarter: 2015Q4

REPORT INFORMATION
  Report Type: Spontaneous
  Country: US (occurrence: None)
  Receive Date: 20150911
  Receipt Date: 20151002
  Transmission Date: 20160304
  Serious: No
  Sender: FDA-Public Use
  Company Number: US-MDT-ADR-2015-01768

PATIENT
  Age: 29 Year
  Sex: Female

DRUGS (1)
  1. BACLOFEN INTRATHECAL [Suspect]
     Active Substance: BACLOFEN

REACTIONS (2)
  - Drug administration error [None]
  - Overdose [None]
